FAERS Safety Report 15341051 (Version 3)
Quarter: 2018Q4

REPORT INFORMATION
  Report Type: Report from Study
  Country: None (occurrence: CH)
  Receive Date: 20180831
  Receipt Date: 20181016
  Transmission Date: 20190204
  Serious: Yes (Death)
  Sender: FDA-Public Use
  Company Number: CH-ABBVIE-18P-151-2472515-00

PATIENT
  Age: 54 Year
  Sex: Female

DRUGS (1)
  1. VENETOCLAX. [Suspect]
     Active Substance: VENETOCLAX
     Indication: ACUTE MYELOID LEUKAEMIA
     Route: 048
     Dates: start: 201807

REACTIONS (4)
  - Acute myeloid leukaemia [Fatal]
  - Agranulocytosis [Fatal]
  - Infection [Fatal]
  - Pyrexia [Fatal]

NARRATIVE: CASE EVENT DATE: 20180816
